FAERS Safety Report 8043552-5 (Version None)
Quarter: 2012Q1

REPORT INFORMATION
  Report Type: 
  Country: None (occurrence: None)
  Receive Date: 20120112
  Receipt Date: 20120111
  Transmission Date: 20120608
  Serious: Yes (Death, Life-Threatening, Hospitalization)
  Sender: FDA-Public Use
  Company Number: US-B.I. PHARMACEUTICALS,INC./RIDGEFIELD-2011-BP-25811BP

PATIENT
  Age: 89 Year
  Sex: Female
  Weight: 61.9 kg

DRUGS (14)
  1. PRADAXA [Suspect]
     Indication: ATRIAL FIBRILLATION
     Dosage: 300 MG
     Dates: end: 20110516
  2. PERCOCET [Concomitant]
     Indication: PAIN
  3. FERROUS GLUCONATE [Concomitant]
     Dosage: 650 MG
  4. HYDROCHLOROTHIAZIDE [Concomitant]
     Dosage: 25 MG
  5. MECLIZINE [Concomitant]
     Indication: VERTIGO
  6. TRAZODONE HCL [Concomitant]
     Dosage: 50 MG
  7. LOSARTAN POTASSIUM [Concomitant]
     Dosage: 50 MG
  8. BUMETANIDE [Concomitant]
     Dosage: 1 MG
  9. WARFARIN SODIUM [Concomitant]
     Dosage: 2 MG
  10. FLUTICASONE [Concomitant]
     Route: 045
  11. LORAZEPAM [Concomitant]
     Indication: ANXIETY
  12. LEVOTHYROXINE SODIUM [Concomitant]
     Dosage: 150 MCG
  13. NITROSTAT [Concomitant]
     Route: 060
  14. METOPROLOL TARTRATE [Concomitant]
     Dosage: 100 MG

REACTIONS (2)
  - INTRAVENTRICULAR HAEMORRHAGE [None]
  - BLOOD PRESSURE SYSTOLIC INCREASED [None]
